FAERS Safety Report 7909555-3 (Version None)
Quarter: 2011Q4

REPORT INFORMATION
  Report Type: 
  Country: None (occurrence: None)
  Receive Date: 20111111
  Receipt Date: 20111104
  Transmission Date: 20120403
  Serious: Yes (Hospitalization)
  Sender: FDA-Public Use
  Company Number: PHHY2011DE097642

PATIENT
  Age: 41 Year
  Sex: Male

DRUGS (8)
  1. LORAZEPAM [Suspect]
     Dosage: 1 MG, 3X1
     Route: 048
     Dates: start: 20100601
  2. TAXILAN [Suspect]
     Dosage: 100 MG,1-0-2
     Route: 048
     Dates: start: 20100901
  3. CEFUROXIME [Concomitant]
     Indication: BRONCHITIS
     Route: 048
     Dates: start: 20110208
  4. CARBAMAZEPINE [Suspect]
     Dosage: 200MG, TWICE DAILY
     Route: 048
     Dates: start: 20090301
  5. RISPERIDONE [Suspect]
     Dosage: 1 MG, 1-0-1
     Route: 048
     Dates: start: 20090301
  6. THIORIDAZINE ^NEURAXPHARM^ [Suspect]
     Dosage: 100 MG, 1-1-1
     Route: 048
     Dates: start: 20071101
  7. AKINETON [Suspect]
     Dosage: 2 MG, 1/2-0-1/2
     Route: 048
     Dates: start: 20050401
  8. LAMOTRIGINE [Suspect]
     Dosage: 100 MG, 1-0-2
     Route: 048
     Dates: start: 20100601

REACTIONS (3)
  - ACUTE HEPATIC FAILURE [None]
  - RENAL FAILURE ACUTE [None]
  - THROMBOCYTOPENIA [None]
